FAERS Safety Report 7079331-5 (Version None)
Quarter: 2010Q4

REPORT INFORMATION
  Report Type: 
  Country: None (occurrence: None)
  Receive Date: 20101102
  Receipt Date: 20100615
  Transmission Date: 20110411
  Serious: No
  Sender: FDA-Public Use
  Company Number: A0865287A

PATIENT
  Age: 85 Year
  Sex: Female

DRUGS (5)
  1. RYTHMOL SR [Suspect]
     Indication: ARRHYTHMIA
     Dosage: 325MG TWICE PER DAY
     Route: 048
  2. THYROID [Concomitant]
  3. CHOLESTEROL [Concomitant]
  4. PANTOPRAZOLE [Concomitant]
  5. BYSTOLIC [Concomitant]

REACTIONS (2)
  - FATIGUE [None]
  - HYPERHIDROSIS [None]
